FAERS Safety Report 22366644 (Version 1)
Quarter: 2023Q2

REPORT INFORMATION
  Report Type: Spontaneous
  Country: CA (occurrence: CA)
  Receive Date: 20230525
  Receipt Date: 20230525
  Transmission Date: 20230722
  Serious: Yes (Other)
  Sender: FDA-Public Use
  Company Number: CA-PFIZER INC-202300198967

PATIENT
  Age: 16 Year
  Sex: Male
  Weight: 58 kg

DRUGS (4)
  1. METHOTREXATE SODIUM [Suspect]
     Active Substance: METHOTREXATE SODIUM
     Route: 037
  2. VINCRISTINE SULFATE [Suspect]
     Active Substance: VINCRISTINE SULFATE
  3. MERCAPTOPURINE [Suspect]
     Active Substance: MERCAPTOPURINE
  4. PREDNISONE [Suspect]
     Active Substance: PREDNISONE

REACTIONS (1)
  - Febrile neutropenia [Recovering/Resolving]
